FAERS Safety Report 26167447 (Version 1)
Quarter: 2025Q4

REPORT INFORMATION
  Report Type: Spontaneous
  Country: CH (occurrence: CH)
  Receive Date: 20251217
  Receipt Date: 20251217
  Transmission Date: 20260117
  Serious: Yes (Other)
  Sender: ABBVIE
  Company Number: CH-ABBVIE-6592180

PATIENT
  Sex: Male

DRUGS (4)
  1. PRED FORTE [Suspect]
     Active Substance: PREDNISOLONE ACETATE
     Indication: Chorioretinitis
     Dosage: PATIENT ROA: OPHTHALMIC
  2. PRED FORTE [Suspect]
     Active Substance: PREDNISOLONE ACETATE
     Indication: Macular oedema
  3. PREDNISONE [Suspect]
     Active Substance: PREDNISONE
     Indication: Product used for unknown indication
     Dosage: DOSE REDUCTION EVERY 7 DAYS.
     Route: 065
  4. PREDNISONE [Suspect]
     Active Substance: PREDNISONE
     Indication: Product used for unknown indication
     Dosage: ONCE REDUCED TO 20MG OR LESS
     Route: 065

REACTIONS (2)
  - Macular oedema [Unknown]
  - Drug ineffective [Unknown]
